FAERS Safety Report 19489884 (Version 2)
Quarter: 2021Q3

REPORT INFORMATION
  Report Type: Spontaneous
  Country: US (occurrence: US)
  Receive Date: 20210704
  Receipt Date: 20210815
  Transmission Date: 20211014
  Serious: Yes (Hospitalization, Disabling, Other)
  Sender: FDA-Public Use
  Company Number: US-AMGEN-USASP2021102780

PATIENT
  Age: 50 Year

DRUGS (1)
  1. ENBREL [Suspect]
     Active Substance: ETANERCEPT
     Indication: RHEUMATOID ARTHRITIS
     Dosage: UNK
     Route: 065

REACTIONS (7)
  - Bronchitis [Unknown]
  - Cough [Unknown]
  - Lung disorder [Unknown]
  - Pneumonia [Unknown]
  - Cardiac disorder [Unknown]
  - Sinusitis [Unknown]
  - Drug hypersensitivity [Unknown]
